FAERS Safety Report 24597041 (Version 2)
Quarter: 2024Q4

REPORT INFORMATION
  Report Type: Spontaneous
  Country: US (occurrence: US)
  Receive Date: 20241110
  Receipt Date: 20241210
  Transmission Date: 20250114
  Serious: No
  Sender: SANOFI AVENTIS
  Company Number: US-SA-2024SA305876

PATIENT
  Sex: Male

DRUGS (10)
  1. DUPIXENT [Suspect]
     Active Substance: DUPILUMAB
     Indication: Dermatitis atopic
     Dosage: 300 MG, QOW
     Route: 058
  2. COVID-19 VACCINE NOS [Suspect]
     Active Substance: COVID-19 VACCINE
     Dosage: UNK
  3. LISDEXAMFETAMINE DIMESYLATE [Concomitant]
     Active Substance: LISDEXAMFETAMINE DIMESYLATE
  4. CLONAZEPAM [Concomitant]
     Active Substance: CLONAZEPAM
  5. DOXYCYCLINE [Concomitant]
     Active Substance: DOXYCYCLINE
  6. PIMECROLIMUS [Concomitant]
     Active Substance: PIMECROLIMUS
  7. PAXLOVID [Concomitant]
     Active Substance: NIRMATRELVIR\RITONAVIR
  8. HYDROXYCHLOROQUINE SULFATE [Concomitant]
     Active Substance: HYDROXYCHLOROQUINE SULFATE
  9. VALACYCLOVIR [Concomitant]
     Active Substance: VALACYCLOVIR HYDROCHLORIDE
  10. FLUTICASONE PROPIONATE [Concomitant]
     Active Substance: FLUTICASONE PROPIONATE

REACTIONS (3)
  - Rash [Unknown]
  - Mouth ulceration [Unknown]
  - Oral mucosal eruption [Unknown]
